FAERS Safety Report 5305189-8 (Version None)
Quarter: 2007Q2

REPORT INFORMATION
  Report Type: 
  Country: None (occurrence: None)
  Receive Date: 20070417
  Receipt Date: 20070405
  Transmission Date: 20071010
  Serious: Yes (Hospitalization)
  Sender: FDA-Public Use
  Company Number: 2007BI005389

PATIENT
  Age: 57 Year
  Sex: Female

DRUGS (9)
  1. AVONEX [Suspect]
     Indication: MULTIPLE SCLEROSIS
     Dosage: 30 UG; QW; IM
     Route: 030
     Dates: start: 20040820
  2. NEURONTIN [Concomitant]
  3. EFFEXOR XR [Concomitant]
  4. INDERAL LA [Concomitant]
  5. VERAPAMIL [Concomitant]
  6. ZOCOR [Concomitant]
  7. KLONOPIN [Concomitant]
  8. ARICEPT [Concomitant]
  9. NEXIUM [Concomitant]

REACTIONS (2)
  - CHOLECYSTITIS [None]
  - TIC [None]
